FAERS Safety Report 19501861 (Version 2)
Quarter: 2021Q3

REPORT INFORMATION
  Report Type: Report from Study
  Country: US (occurrence: US)
  Receive Date: 20210707
  Receipt Date: 20210915
  Transmission Date: 20211014
  Serious: Yes (Other)
  Sender: FDA-Public Use
  Company Number: US-SA-2021SA008191

PATIENT
  Age: 45 Year
  Sex: Female

DRUGS (4)
  1. AGALSIDASE BETA [Suspect]
     Active Substance: AGALSIDASE BETA
     Dosage: 45 MG, QOW
     Route: 042
     Dates: start: 20210330
  2. AGALSIDASE BETA [Suspect]
     Active Substance: AGALSIDASE BETA
     Dosage: 45 MG, QOW
     Route: 042
     Dates: start: 20210107
  3. AGALSIDASE BETA [Suspect]
     Active Substance: AGALSIDASE BETA
     Indication: FABRY^S DISEASE
     Dosage: 45 MG, QOW
     Route: 042
     Dates: start: 20200701
  4. AGALSIDASE BETA [Suspect]
     Active Substance: AGALSIDASE BETA
     Dosage: 50 MG, QOW
     Route: 042
     Dates: start: 20210413

REACTIONS (14)
  - Fatigue [Recovering/Resolving]
  - Depression [Not Recovered/Not Resolved]
  - Spinal fusion surgery [Recovering/Resolving]
  - Joint injury [Not Recovered/Not Resolved]
  - Memory impairment [Not Recovered/Not Resolved]
  - Heart rate decreased [Not Recovered/Not Resolved]
  - Intervertebral disc degeneration [Not Recovered/Not Resolved]
  - Apathy [Not Recovered/Not Resolved]
  - Loss of consciousness [Not Recovered/Not Resolved]
  - Road traffic accident [Not Recovered/Not Resolved]
  - Night sweats [Not Recovered/Not Resolved]
  - Middle insomnia [Not Recovered/Not Resolved]
  - Hypotension [Not Recovered/Not Resolved]
  - Feeling abnormal [Not Recovered/Not Resolved]

NARRATIVE: CASE EVENT DATE: 20201210
